FAERS Safety Report 16031942 (Version 1)
Quarter: 2019Q1

REPORT INFORMATION
  Report Type: Spontaneous
  Country: NL (occurrence: NL)
  Receive Date: 20190304
  Receipt Date: 20190304
  Transmission Date: 20190418
  Serious: Yes (Disabling)
  Sender: FDA-Public Use
  Company Number: NL-MYLANLABS-2019M1018672

PATIENT
  Age: 67 Year
  Sex: Male
  Weight: 73 kg

DRUGS (1)
  1. TRANEXAMIC ACID MYLAN [Suspect]
     Active Substance: TRANEXAMIC ACID
     Indication: ANEURYSM RUPTURED
     Dosage: 1000 MG IV
     Route: 042
     Dates: start: 20180802

REACTIONS (2)
  - Peripheral artery occlusion [Unknown]
  - Leg amputation [None]

NARRATIVE: CASE EVENT DATE: 20180802
